FAERS Safety Report 4680000-7 (Version None)
Quarter: 2005Q2

REPORT INFORMATION
  Report Type: 
  Country: None (occurrence: None)
  Receive Date: 20050602
  Receipt Date: 20050510
  Transmission Date: 20051028
  Serious: Yes (Hospitalization, Other)
  Sender: FDA-Public Use
  Company Number: US-GLAXOSMITHKLINE-A0558429A

PATIENT
  Age: 53 Year
  Sex: Female
  Weight: 94.6 kg

DRUGS (15)
  1. GW597599 [Suspect]
     Indication: PROPHYLAXIS OF NAUSEA AND VOMITING
     Dosage: 18MG SINGLE DOSE
     Route: 042
     Dates: start: 20050506, end: 20050506
  2. ONDANSETRON [Suspect]
     Indication: PROPHYLAXIS OF NAUSEA AND VOMITING
     Dosage: 4MG SINGLE DOSE
     Route: 042
     Dates: start: 20050506
  3. PLACEBO [Suspect]
     Indication: PROPHYLAXIS OF NAUSEA AND VOMITING
     Route: 048
     Dates: start: 20050506
  4. ESTRADIOL PATCH [Concomitant]
     Indication: HORMONE REPLACEMENT THERAPY
     Route: 061
     Dates: start: 20040301
  5. PREVACID [Concomitant]
     Indication: GASTROOESOPHAGEAL REFLUX DISEASE
     Route: 048
  6. PERCOCET [Concomitant]
     Indication: PAIN
     Route: 048
  7. FENTANYL [Concomitant]
     Indication: PAIN
     Dosage: 25MCG AS REQUIRED
     Route: 042
     Dates: start: 20050506, end: 20050508
  8. MIDAZOLAM [Concomitant]
     Indication: PREOPERATIVE CARE
     Dosage: 1MG SINGLE DOSE
  9. ROCURONIUM [Concomitant]
     Indication: INDUCTION OF ANAESTHESIA
  10. FENTANYL [Concomitant]
     Indication: INDUCTION OF ANAESTHESIA
  11. PROPOFOL [Concomitant]
     Indication: INDUCTION OF ANAESTHESIA
  12. CEFAZOLIN [Concomitant]
  13. CLONIDIN [Concomitant]
     Route: 042
  14. FENTANYL [Concomitant]
     Indication: PREOPERATIVE CARE
     Route: 042
  15. REMIFENTANIL [Concomitant]
     Route: 042

REACTIONS (3)
  - ATELECTASIS [None]
  - CHEST PAIN [None]
  - UNWANTED AWARENESS DURING ANAESTHESIA [None]
